FAERS Safety Report 7575307-X (Version None)
Quarter: 2011Q2

REPORT INFORMATION
  Report Type: 
  Country: None (occurrence: None)
  Receive Date: 20110627
  Receipt Date: 20110617
  Transmission Date: 20111010
  Serious: Yes (Hospitalization)
  Sender: FDA-Public Use
  Company Number: FR-B.I. PHARMACEUTICALS,INC./RIDGEFIELD-2011-FF-00590FF

PATIENT
  Sex: Male

DRUGS (18)
  1. ASPIRIN [Suspect]
     Dosage: 160 MG
     Route: 048
     Dates: start: 20110123, end: 20110124
  2. ASPIRIN [Suspect]
     Dosage: 75 MG
     Route: 048
     Dates: start: 20110125, end: 20110127
  3. DICLOFENAC SODIUM [Suspect]
     Dosage: 200 MG
     Route: 048
     Dates: start: 20110121, end: 20110124
  4. LERCANIDIPINE [Concomitant]
  5. PAROXETINE HCL [Concomitant]
  6. SEVREDOL [Concomitant]
     Dates: start: 20110121
  7. PRADAXA [Suspect]
     Dosage: 220 MG
     Route: 048
     Dates: start: 20110123, end: 20110126
  8. ALPRAZOLAM [Concomitant]
  9. ADANCOR [Concomitant]
  10. PRADAXA [Suspect]
     Indication: HIP ARTHROPLASTY
     Dosage: 110 MG
     Route: 048
     Dates: start: 20110121, end: 20110121
  11. CANDESARTAN CILEXETIL [Concomitant]
  12. LEVOTHYROXINE SODIUM [Concomitant]
  13. NEBIVOLOL HCL [Concomitant]
  14. LASIX [Concomitant]
  15. TRAMADOL HCL [Concomitant]
     Dates: start: 20110121
  16. PRADAXA [Suspect]
     Dosage: 330 MG
     Route: 048
     Dates: start: 20110122, end: 20110122
  17. SIMVASTATIN [Concomitant]
  18. ACETAMINOPHEN [Concomitant]
     Dates: start: 20110121

REACTIONS (3)
  - EPISTAXIS [None]
  - HEPATITIS CHOLESTATIC [None]
  - CONJUNCTIVAL HAEMORRHAGE [None]
